FAERS Safety Report 17300176 (Version 1)
Quarter: 2020Q1

REPORT INFORMATION
  Report Type: Spontaneous
  Country: US (occurrence: US)
  Receive Date: 20200122
  Receipt Date: 20200122
  Transmission Date: 20200409
  Serious: No
  Sender: FDA-Public Use
  Company Number: US-ALLERGAN-1916050US

PATIENT
  Sex: Female

DRUGS (2)
  1. RESTASIS [Suspect]
     Active Substance: CYCLOSPORINE
     Indication: DRY EYE
     Dosage: 2 GTT, BID (12 HOURS A PART)
     Route: 047
     Dates: end: 20190411
  2. UNSPECIFED EYE LUBRICANT [Concomitant]
     Route: 047

REACTIONS (3)
  - Eye pain [Recovering/Resolving]
  - Multiple use of single-use product [Unknown]
  - Eye irritation [Recovering/Resolving]
